FAERS Safety Report 4350326-5 (Version None)
Quarter: 2004Q2

REPORT INFORMATION
  Report Type: 
  Country: None (occurrence: None)
  Receive Date: 20040427
  Receipt Date: 20030701
  Transmission Date: 20050107
  Serious: No
  Sender: FDA-Public Use
  Company Number: 000578

PATIENT
  Age: 65 Year
  Sex: Male
  Weight: 89.8 kg

DRUGS (2)
  1. ZEVALIN [Suspect]
     Indication: NON-HODGKIN'S LYMPHOMA
     Dosage: SEE IMAGE
     Dates: start: 20021101, end: 20021101
  2. .. [Suspect]

REACTIONS (1)
  - DISEASE PROGRESSION [None]
